FAERS Safety Report 8288627-0 (Version None)
Quarter: 2012Q2

REPORT INFORMATION
  Report Type: 
  Country: None (occurrence: None)
  Receive Date: 20120416
  Receipt Date: 20120405
  Transmission Date: 20120825
  Serious: Yes (Hospitalization, Other)
  Sender: FDA-Public Use
  Company Number: US-ELI_LILLY_AND_COMPANY-US201201008071

PATIENT
  Sex: Female

DRUGS (12)
  1. FORTEO [Suspect]
     Dosage: 20 UG, QD
  2. MOBIC [Concomitant]
     Dosage: 7.5 MG, BID
  3. ACETAMINOPHEN AND HYDROCODONE BITARTRATE [Concomitant]
     Indication: PAIN
     Dosage: UNK, PRN
  4. SERTRALINE HYDROCHLORIDE [Concomitant]
     Dosage: 50 MG, QD
  5. GABAPENTIN [Concomitant]
     Dosage: 600 MG, QID
  6. FORTEO [Suspect]
     Indication: OSTEOPOROSIS
     Dosage: 20 UG, QD
  7. TRAMADOL HCL [Concomitant]
     Dosage: 100 MG, QID
  8. FLUTICASONE PROPIONATE [Concomitant]
     Dosage: UNK, QD
  9. VITAMIN D2 [Concomitant]
     Dosage: 1.25 MG, WEEKLY (1/W)
  10. METOPROLOL [Concomitant]
     Indication: BLOOD PRESSURE
     Dosage: 2.5 MG, BID
  11. ALLOPURINOL [Concomitant]
     Indication: GOUT
     Dosage: 300 MG, QD
  12. LEVOTHYROXINE SODIUM [Concomitant]
     Dosage: 175 UG, QD

REACTIONS (15)
  - INFECTION [None]
  - MALAISE [None]
  - FALL [None]
  - VOMITING [None]
  - HIP ARTHROPLASTY [None]
  - SURGERY [None]
  - AMNESIA [None]
  - ADVERSE DRUG REACTION [None]
  - DIARRHOEA [None]
  - ASTHENIA [None]
  - BRAIN INJURY [None]
  - UPPER LIMB FRACTURE [None]
  - LOSS OF CONSCIOUSNESS [None]
  - DEVICE FAILURE [None]
  - INFLUENZA [None]
